FAERS Safety Report 5451748-1 (Version None)
Quarter: 2007Q3

REPORT INFORMATION
  Report Type: 
  Country: None (occurrence: None)
  Receive Date: 20070913
  Receipt Date: 20070903
  Transmission Date: 20080115
  Serious: Yes (Disabling)
  Sender: FDA-Public Use
  Company Number: GB-PFIZER INC-2007074081

PATIENT
  Age: 43 Year
  Sex: Female

DRUGS (2)
  1. VARENICLINE TABLETS [Suspect]
     Indication: SMOKING CESSATION THERAPY
     Route: 048
     Dates: start: 20070329, end: 20070412
  2. DEPO-PROVERA [Concomitant]

REACTIONS (2)
  - JOINT STIFFNESS [None]
  - MUSCULOSKELETAL CHEST PAIN [None]
